FAERS Safety Report 9704158 (Version 1)
Quarter: 2013Q4

REPORT INFORMATION
  Report Type: Spontaneous
  Country: US (occurrence: US)
  Receive Date: 20131122
  Receipt Date: 20131122
  Transmission Date: 20140711
  Serious: No
  Sender: FDA-Public Use
  Company Number: US-GLAXOSMITHKLINE-A1036823A

PATIENT
  Age: 18 Year
  Sex: Female

DRUGS (3)
  1. WELLBUTRIN [Suspect]
     Indication: DEPRESSION
     Dates: start: 200707
  2. DILAUDID [Concomitant]
  3. TYLENOL LIQUID [Concomitant]

REACTIONS (2)
  - Screaming [Recovered/Resolved]
  - Drug administration error [Recovered/Resolved]
